FAERS Safety Report 16211833 (Version 1)
Quarter: 2019Q2

REPORT INFORMATION
  Report Type: Report from Study
  Country: KR (occurrence: KR)
  Receive Date: 20190418
  Receipt Date: 20190418
  Transmission Date: 20190711
  Serious: Yes (Other)
  Sender: FDA-Public Use
  Company Number: KR-ROCHE-2306069

PATIENT

DRUGS (2)
  1. BEVACIZUMAB. [Suspect]
     Active Substance: BEVACIZUMAB
     Indication: HEREDITARY LEIOMYOMATOSIS RENAL CELL CARCINOMA
     Route: 042
  2. ERLOTINIB [Suspect]
     Active Substance: ERLOTINIB
     Indication: HEREDITARY LEIOMYOMATOSIS RENAL CELL CARCINOMA
     Route: 048

REACTIONS (18)
  - Blood creatinine increased [Unknown]
  - Palmar-plantar erythrodysaesthesia syndrome [Unknown]
  - Dry skin [Unknown]
  - Hyperbilirubinaemia [Unknown]
  - Anaemia [Unknown]
  - Insomnia [Unknown]
  - Neuropathy peripheral [Unknown]
  - Hypertension [Unknown]
  - Dry eye [Unknown]
  - Fatigue [Unknown]
  - Stomatitis [Unknown]
  - Proteinuria [Unknown]
  - Diarrhoea [Unknown]
  - Decreased appetite [Unknown]
  - Wound dehiscence [Unknown]
  - Dermatitis acneiform [Unknown]
  - Alanine aminotransferase increased [Unknown]
  - Epistaxis [Unknown]
